FAERS Safety Report 9221428 (Version 1)
Quarter: 2013Q2

REPORT INFORMATION
  Report Type: Spontaneous
  Country: US (occurrence: US)
  Receive Date: 20130410
  Receipt Date: 20130410
  Transmission Date: 20140414
  Serious: No
  Sender: FDA-Public Use
  Company Number: US-BIOGENIDEC-2013BI032527

PATIENT
  Age: 58 Year
  Sex: Female

DRUGS (3)
  1. TYSABRI [Suspect]
     Indication: MULTIPLE SCLEROSIS
     Route: 042
     Dates: start: 20081114
  2. ANTIBIOTICS [Concomitant]
  3. STERIODS [Concomitant]

REACTIONS (2)
  - Seasonal allergy [Not Recovered/Not Resolved]
  - Infection [Not Recovered/Not Resolved]
